FAERS Safety Report 16436920 (Version 4)
Quarter: 2019Q3

REPORT INFORMATION
  Report Type: Spontaneous
  Country: US (occurrence: US)
  Receive Date: 20190614
  Receipt Date: 20190815
  Transmission Date: 20191004
  Serious: Yes (Death, Hospitalization)
  Sender: FDA-Public Use
  Company Number: PHEH2019US025256

PATIENT
  Sex: Male
  Weight: 58.36 kg

DRUGS (2)
  1. TAFINLAR [Suspect]
     Active Substance: DABRAFENIB MESYLATE
     Indication: THYROID CANCER
     Dosage: 150 MG, Q12H
     Route: 048
     Dates: start: 20190613
  2. MEKINIST [Suspect]
     Active Substance: TRAMETINIB DIMETHYL SULFOXIDE
     Indication: THYROID CANCER
     Dosage: 2 MG, QD
     Route: 048
     Dates: start: 20190516

REACTIONS (4)
  - Malignant neoplasm progression [Fatal]
  - Thyroid cancer [Fatal]
  - Rash [Unknown]
  - Product use in unapproved indication [Unknown]
